FAERS Safety Report 8207308-2 (Version None)
Quarter: 2012Q1

REPORT INFORMATION
  Report Type: 
  Country: None (occurrence: None)
  Receive Date: 20120312
  Receipt Date: 20120228
  Transmission Date: 20120608
  Serious: Yes (Other)
  Sender: FDA-Public Use
  Company Number: 2012NA000028

PATIENT
  Age: 20 Year
  Sex: Female

DRUGS (6)
  1. DICLOFENAC SODIUM [Suspect]
     Indication: PRODUCT USED FOR UNKNOWN INDICATION
     Dosage: 50 MG;BID
  2. DICLOFENAC SODIUM [Suspect]
     Indication: PRODUCT USED FOR UNKNOWN INDICATION
     Dosage: 50 MG;BID
  3. AMOXICILLIN AND CLAVULANATE POTASSIUM [Concomitant]
  4. METRONIDAZOLE [Concomitant]
  5. RANITIDINE [Concomitant]
  6. ACETAMINOPHEN [Concomitant]

REACTIONS (6)
  - PLACENTAL INSUFFICIENCY [None]
  - SKIN ULCER [None]
  - CAESAREAN SECTION [None]
  - OLIGOHYDRAMNIOS [None]
  - MATERNAL EXPOSURE DURING PREGNANCY [None]
  - IMPAIRED HEALING [None]
